FAERS Safety Report 5925022-0 (Version None)
Quarter: 2008Q3

REPORT INFORMATION
  Report Type: 
  Country: None (occurrence: None)
  Receive Date: 20080909
  Receipt Date: 20070827
  Transmission Date: 20090109
  Serious: Yes (Death)
  Sender: FDA-Public Use
  Company Number: 163-20785-07081651

PATIENT
  Age: 48 Year
  Sex: Female

DRUGS (3)
  1. THALOMID [Suspect]
     Indication: BREAST CANCER FEMALE
     Dosage: 200-100MG, DAILY, ORAL ; 200 MG, 2 IN 1 D, ORAL ; 100 MG, 1 IN 1 D, ORAL
     Route: 048
     Dates: start: 20040812, end: 20050601
  2. THALOMID [Suspect]
     Indication: BREAST CANCER FEMALE
     Dosage: 200-100MG, DAILY, ORAL ; 200 MG, 2 IN 1 D, ORAL ; 100 MG, 1 IN 1 D, ORAL
     Route: 048
     Dates: start: 20050607, end: 20061201
  3. THALOMID [Suspect]
     Indication: BREAST CANCER FEMALE
     Dosage: 200-100MG, DAILY, ORAL ; 200 MG, 2 IN 1 D, ORAL ; 100 MG, 1 IN 1 D, ORAL
     Route: 048
     Dates: start: 20070316, end: 20070701

REACTIONS (1)
  - DEATH [None]
